FAERS Safety Report 13947487 (Version 3)
Quarter: 2018Q2

REPORT INFORMATION
  Report Type: Spontaneous
  Country: AR (occurrence: AR)
  Receive Date: 20170908
  Receipt Date: 20180419
  Transmission Date: 20180711
  Serious: Yes (Other)
  Sender: FDA-Public Use
  Company Number: AR-AMGEN-ARGSP2017135796

PATIENT
  Age: 62 Year
  Sex: Female

DRUGS (2)
  1. ENBREL [Suspect]
     Active Substance: ETANERCEPT
     Indication: RHEUMATOID ARTHRITIS
     Dosage: 50 MG, EVERY 15 DAYS
     Route: 065
     Dates: start: 20160128
  2. ENBREL [Suspect]
     Active Substance: ETANERCEPT
     Dosage: 50 MG, QWK
     Route: 065

REACTIONS (13)
  - Product use issue [Unknown]
  - Sleep disorder due to a general medical condition [Unknown]
  - Fibula fracture [Unknown]
  - Lower limb fracture [Recovering/Resolving]
  - Arthralgia [Unknown]
  - Infection [Recovered/Resolved]
  - Tibia fracture [Unknown]
  - Joint dislocation [Unknown]
  - Urinary tract infection [Unknown]
  - Tooth infection [Recovered/Resolved]
  - Fall [Recovering/Resolving]
  - Bone fissure [Unknown]
  - Joint effusion [Unknown]

NARRATIVE: CASE EVENT DATE: 20160128
